FAERS Safety Report 18617909 (Version 6)
Quarter: 2021Q2

REPORT INFORMATION
  Report Type: Report from Study
  Country: US (occurrence: US)
  Receive Date: 20201215
  Receipt Date: 20210615
  Transmission Date: 20210717
  Serious: Yes (Other)
  Sender: FDA-Public Use
  Company Number: NVSC2020US326464

PATIENT
  Age: 44 Year
  Sex: Female
  Weight: 122.5 kg

DRUGS (3)
  1. COSENTYX [Suspect]
     Active Substance: SECUKINUMAB
     Dosage: UNK
     Route: 065
     Dates: start: 20210324
  2. COSENTYX [Suspect]
     Active Substance: SECUKINUMAB
     Dosage: 300 MG (150 MG/ML X2) (LOADING DOSE)
     Route: 058
     Dates: start: 20201105
  3. COSENTYX [Suspect]
     Active Substance: SECUKINUMAB
     Indication: PSORIASIS
     Dosage: 300 MG, QW
     Route: 058
     Dates: start: 202011

REACTIONS (10)
  - Psoriatic arthropathy [Unknown]
  - Product dose omission issue [Unknown]
  - Arthralgia [Unknown]
  - Vomiting [Unknown]
  - Pain [Recovered/Resolved]
  - Diarrhoea [Unknown]
  - Expired product administered [Unknown]
  - Chills [Unknown]
  - Psoriasis [Unknown]
  - Blister [Unknown]

NARRATIVE: CASE EVENT DATE: 202011
